FAERS Safety Report 5331083-2 (Version None)
Quarter: 2007Q2

REPORT INFORMATION
  Report Type: 
  Country: None (occurrence: None)
  Receive Date: 20070517
  Receipt Date: 20070503
  Transmission Date: 20071010
  Serious: Yes (Hospitalization)
  Sender: FDA-Public Use
  Company Number: 16401

PATIENT
  Age: 32 Year
  Sex: Male

DRUGS (1)
  1. VINCRISTINE [Suspect]

REACTIONS (8)
  - DENERVATION ATROPHY [None]
  - DYSAESTHESIA [None]
  - PARAPARESIS [None]
  - PARESIS ANAL SPHINCTER [None]
  - POLYNEUROPATHY [None]
  - RESPIRATORY ALKALOSIS [None]
  - URINARY RETENTION [None]
  - WRONG DRUG ADMINISTERED [None]
